FAERS Safety Report 10488876 (Version 1)
Quarter: 2014Q4

REPORT INFORMATION
  Report Type: Spontaneous
  Country: PT (occurrence: PT)
  Receive Date: 20141002
  Receipt Date: 20141002
  Transmission Date: 20150528
  Serious: Yes (Hospitalization)
  Sender: FDA-Public Use
  Company Number: PT-JNJFOC-20140916915

PATIENT
  Sex: Male

DRUGS (2)
  1. PREZISTA [Suspect]
     Active Substance: DARUNAVIR ETHANOLATE
     Indication: HIV INFECTION
     Route: 048
  2. TRUVADA [Suspect]
     Active Substance: EMTRICITABINE\TENOFOVIR DISOPROXIL FUMARATE
     Indication: PRODUCT USED FOR UNKNOWN INDICATION
     Route: 065

REACTIONS (6)
  - Arthralgia [Not Recovered/Not Resolved]
  - Testicular pain [Not Recovered/Not Resolved]
  - Pyrexia [Recovered/Resolved]
  - Urinary tract disorder [Recovered/Resolved]
  - Renal failure [Unknown]
  - Arthritis bacterial [Recovered/Resolved]

NARRATIVE: CASE EVENT DATE: 2014
